FAERS Safety Report 7161296-9 (Version None)
Quarter: 2010Q4

REPORT INFORMATION
  Report Type: 
  Country: None (occurrence: None)
  Receive Date: 20101215
  Receipt Date: 20101207
  Transmission Date: 20110411
  Serious: Yes (Hospitalization)
  Sender: FDA-Public Use
  Company Number: GB-JNJFOC-20101102485

PATIENT
  Age: 15 Year
  Sex: Male

DRUGS (7)
  1. METHYLPHENIDATE HCL [Suspect]
     Indication: ILL-DEFINED DISORDER
     Route: 048
  2. PARACETAMOL [Suspect]
     Route: 048
  3. PARACETAMOL [Suspect]
     Indication: ILL-DEFINED DISORDER
     Route: 048
  4. SERTRALINE [Suspect]
     Indication: ILL-DEFINED DISORDER
     Route: 048
  5. AMPHETAMINE SULFATE [Suspect]
     Indication: ILL-DEFINED DISORDER
     Route: 048
  6. ASPIRIN [Suspect]
     Indication: ILL-DEFINED DISORDER
     Route: 048
  7. MELATONIN [Suspect]
     Indication: ILL-DEFINED DISORDER
     Route: 048

REACTIONS (1)
  - MULTIPLE DRUG OVERDOSE [None]
